FAERS Safety Report 17082773 (Version 4)
Quarter: 2020Q1

REPORT INFORMATION
  Report Type: Report from Study
  Country: BR (occurrence: BR)
  Receive Date: 20191127
  Receipt Date: 20200124
  Transmission Date: 20200409
  Serious: Yes (Death, Hospitalization, Other)
  Sender: FDA-Public Use
  Company Number: NVSC2019BR045546

PATIENT
  Sex: Male

DRUGS (3)
  1. ARADOIS [Concomitant]
     Active Substance: LOSARTAN POTASSIUM
     Indication: HYPERTENSION
     Route: 048
  2. VOTRIENT [Suspect]
     Active Substance: PAZOPANIB HYDROCHLORIDE
     Dosage: UNK
     Route: 065
  3. VOTRIENT [Suspect]
     Active Substance: PAZOPANIB HYDROCHLORIDE
     Indication: RENAL CANCER METASTATIC
     Dosage: UNK
     Route: 065
     Dates: start: 20190925, end: 20191111

REACTIONS (8)
  - Drug ineffective [Fatal]
  - Metastases to kidney [Fatal]
  - Metastases to peritoneum [Fatal]
  - Metastases to spleen [Fatal]
  - Metastases to liver [Fatal]
  - Renal cancer [Fatal]
  - Malignant neoplasm progression [Fatal]
  - Terminal state [Fatal]

NARRATIVE: CASE EVENT DATE: 20191105
